FAERS Safety Report 11623488 (Version 1)
Quarter: 2015Q4

REPORT INFORMATION
  Report Type: Spontaneous
  Country: US (occurrence: US)
  Receive Date: 20151013
  Receipt Date: 20151013
  Transmission Date: 20160304
  Serious: No
  Sender: FDA-Public Use
  Company Number: US-JNJFOC-20150114999

PATIENT
  Age: 93 Year
  Sex: Female
  Weight: 51.26 kg

DRUGS (6)
  1. GABAPENTIN. [Concomitant]
     Active Substance: GABAPENTIN
     Indication: NEUROPATHY PERIPHERAL
     Dosage: 100MG NIGHTLY 8 YEARS
     Route: 065
  2. NEXIUM [Concomitant]
     Active Substance: ESOMEPRAZOLE MAGNESIUM
     Indication: GASTROOESOPHAGEAL REFLUX DISEASE
     Dosage: 2 X WEEKLY 20+ YEARS
     Route: 065
  3. VITAMIN C [Concomitant]
     Active Substance: ASCORBIC ACID
     Indication: NUTRITIONAL SUPPLEMENTATION
     Dosage: DAILY YEARS
     Route: 065
  4. FISH OILS [Concomitant]
     Indication: NUTRITIONAL SUPPLEMENTATION
     Dosage: DAILY YEARS
     Route: 065
  5. TYLENOL EXTRA STRENGTH [Suspect]
     Active Substance: ACETAMINOPHEN
     Route: 048
  6. TYLENOL EXTRA STRENGTH [Suspect]
     Active Substance: ACETAMINOPHEN
     Indication: ARTHRITIS
     Dosage: 1 CAPLET EVERY 4 HOURS
     Route: 048
     Dates: end: 20150118

REACTIONS (2)
  - Rash macular [Not Recovered/Not Resolved]
  - Urticaria [Unknown]
